FAERS Safety Report 12931797 (Version 6)
Quarter: 2017Q3

REPORT INFORMATION
  Report Type: Spontaneous
  Country: AR (occurrence: AR)
  Receive Date: 20161111
  Receipt Date: 20170901
  Transmission Date: 20171127
  Serious: Yes (Hospitalization, Other)
  Sender: FDA-Public Use
  Company Number: AR-AMGEN-ARGSP2016156844

PATIENT
  Age: 57 Year
  Sex: Female

DRUGS (1)
  1. ENBREL [Suspect]
     Active Substance: ETANERCEPT
     Indication: RHEUMATOID ARTHRITIS
     Dosage: 50 MG, WEEKLY
     Route: 065
     Dates: start: 20131107

REACTIONS (7)
  - Memory impairment [Recovering/Resolving]
  - Dysgraphia [Recovering/Resolving]
  - Arthropathy [Not Recovered/Not Resolved]
  - Cerebrovascular accident [Recovered/Resolved]
  - Cognitive disorder [Unknown]
  - Visual acuity reduced [Recovering/Resolving]
  - Reading disorder [Recovering/Resolving]

NARRATIVE: CASE EVENT DATE: 20160501
